FAERS Safety Report 8125540-3 (Version None)
Quarter: 2012Q1

REPORT INFORMATION
  Report Type: 
  Country: None (occurrence: None)
  Receive Date: 20120209
  Receipt Date: 20120203
  Transmission Date: 20120608
  Serious: Yes (Congenital Anomaly, Other)
  Sender: FDA-Public Use
  Company Number: US-PFIZER INC-2012032021

PATIENT
  Sex: Male

DRUGS (1)
  1. ZOLOFT [Suspect]
     Indication: DEPRESSION
     Dosage: UNK
     Route: 064

REACTIONS (5)
  - AORTIC ANEURYSM [None]
  - VASCULAR ANOMALY [None]
  - HEART DISEASE CONGENITAL [None]
  - MATERNAL EXPOSURE TIMING UNSPECIFIED [None]
  - TRANSPOSITION OF THE GREAT VESSELS [None]
